FAERS Safety Report 16779587 (Version 8)
Quarter: 2021Q3

REPORT INFORMATION
  Report Type: Spontaneous
  Country: US (occurrence: US)
  Receive Date: 20190906
  Receipt Date: 20210927
  Transmission Date: 20211014
  Serious: Yes (Other)
  Sender: FDA-Public Use
  Company Number: US-PFIZER INC-2018524894

PATIENT
  Age: 62 Year
  Sex: Female

DRUGS (2)
  1. XELJANZ [Suspect]
     Active Substance: TOFACITINIB CITRATE
     Indication: COLITIS ULCERATIVE
     Dosage: 5 MG, 2X/DAY
     Route: 048
     Dates: start: 201809
  2. XELJANZ [Suspect]
     Active Substance: TOFACITINIB CITRATE
     Dosage: 10 MG, UNK

REACTIONS (8)
  - Thinking abnormal [Unknown]
  - Presyncope [Unknown]
  - Product dose omission issue [Unknown]
  - Deafness unilateral [Unknown]
  - Haemorrhage [Unknown]
  - Feeling hot [Unknown]
  - Malaise [Unknown]
  - Back pain [Not Recovered/Not Resolved]
